FAERS Safety Report 12681940 (Version 2)
Quarter: 2016Q4

REPORT INFORMATION
  Report Type: Spontaneous
  Country: PT (occurrence: PT)
  Receive Date: 20160824
  Receipt Date: 20161013
  Transmission Date: 20170207
  Serious: Yes (Hospitalization)
  Sender: FDA-Public Use
  Company Number: PT-BAYER-2016-158338

PATIENT
  Age: 31 Year
  Sex: Female

DRUGS (3)
  1. SIMVASTATIN. [Suspect]
     Active Substance: SIMVASTATIN
     Dosage: 20 MG, UNK
  2. ACETYLSALICYLIC ACID (} 100 MG) [Suspect]
     Active Substance: ASPIRIN
     Indication: ANTICOAGULANT THERAPY
     Dosage: 150 MG, UNK
  3. HEPARIN [Suspect]
     Active Substance: HEPARIN SODIUM
     Indication: ANTICOAGULANT THERAPY
     Dosage: 60 MG, BID
     Route: 058

REACTIONS (6)
  - Facial paralysis [None]
  - Motor dysfunction [None]
  - Neurologic neglect syndrome [None]
  - Haemorrhagic stroke [None]
  - Visual impairment [None]
  - Cerebral ischaemia [None]
